FAERS Safety Report 24756988 (Version 1)
Quarter: 2024Q4

REPORT INFORMATION
  Report Type: Spontaneous
  Country: IR (occurrence: IR)
  Receive Date: 20241220
  Receipt Date: 20241220
  Transmission Date: 20250115
  Serious: Yes (Death, Hospitalization, Other)
  Sender: NOVITIUM PHARMA
  Company Number: IR-NOVITIUMPHARMA-2024IRNVP02903

PATIENT
  Age: 4 Year
  Sex: Male

DRUGS (3)
  1. ACYCLOVIR [Suspect]
     Active Substance: ACYCLOVIR
     Indication: Varicella
  2. ACETAMINOPHEN [Concomitant]
     Active Substance: ACETAMINOPHEN
     Indication: Varicella
  3. DICLOFENAC [Concomitant]
     Active Substance: DICLOFENAC
     Indication: Varicella

REACTIONS (2)
  - Necrotising fasciitis [Fatal]
  - Drug ineffective [Unknown]
